FAERS Safety Report 9403240 (Version 4)
Quarter: 2013Q4

REPORT INFORMATION
  Report Type: Report from Study
  Country: US (occurrence: US)
  Receive Date: 20130716
  Receipt Date: 20131205
  Transmission Date: 20140711
  Serious: Yes (Hospitalization)
  Sender: FDA-Public Use
  Company Number: US-ACTELION-A-US2013-85745

PATIENT
  Age: 80 Year
  Sex: Male

DRUGS (1)
  1. TRACLEER [Suspect]
     Indication: PULMONARY ARTERIAL HYPERTENSION
     Dosage: UNK
     Route: 048

REACTIONS (6)
  - Diarrhoea [Unknown]
  - Asthenia [Unknown]
  - Drug dose omission [Unknown]
  - Malaise [Unknown]
  - Gastrointestinal motility disorder [Unknown]
  - Vomiting [Unknown]
